FAERS Safety Report 4991292-9 (Version None)
Quarter: 2006Q2

REPORT INFORMATION
  Report Type: 
  Country: None (occurrence: None)
  Receive Date: 20060428
  Receipt Date: 20060417
  Transmission Date: 20061013
  Serious: Yes (Other)
  Sender: FDA-Public Use
  Company Number: 2005092900

PATIENT
  Age: 43 Year
  Sex: Female
  Weight: 60.782 kg

DRUGS (1)
  1. CALADRYL [Suspect]
     Indication: RASH
     Dosage: A LITTLE BIT ON ARMS 5 X
     Dates: start: 20050601

REACTIONS (3)
  - DRUG EXPOSURE DURING PREGNANCY [None]
  - POOR QUALITY DRUG ADMINISTERED [None]
  - PREMATURE BABY [None]
